FAERS Safety Report 20176255 (Version 6)
Quarter: 2022Q1

REPORT INFORMATION
  Report Type: Report from Study
  Country: BE (occurrence: BE)
  Receive Date: 20211213
  Receipt Date: 20220228
  Transmission Date: 20220423
  Serious: Yes (Hospitalization, Other)
  Sender: FDA-Public Use
  Company Number: BE-BRISTOL-MYERS SQUIBB COMPANY-BMS-2021-114275

PATIENT
  Age: 54 Year
  Sex: Female

DRUGS (3)
  1. NIVOLUMAB [Suspect]
     Active Substance: NIVOLUMAB
     Indication: Malignant melanoma
     Dosage: GIVEN IN HOSPITAL , Q3WK
     Route: 065
     Dates: start: 20211028
  2. NIVOLUMAB [Suspect]
     Active Substance: NIVOLUMAB
     Dosage: GIVEN IN HOSPITAL , Q3WK
     Route: 065
     Dates: start: 20211206, end: 20220111
  3. IPILIMUMAB [Suspect]
     Active Substance: IPILIMUMAB
     Indication: Malignant melanoma
     Dosage: GIVEN IN HOSPITAL, Q3WK
     Route: 065
     Dates: start: 20211028, end: 20220111

REACTIONS (18)
  - Pain [Unknown]
  - Metastases to spine [Unknown]
  - Dyspnoea [Unknown]
  - Dry mouth [Unknown]
  - Myalgia [Unknown]
  - Malignant neoplasm progression [Unknown]
  - Pollakiuria [Unknown]
  - Headache [Unknown]
  - Pigmentation disorder [Unknown]
  - Cough [Unknown]
  - Fatigue [Unknown]
  - Hypertension [Unknown]
  - Constipation [Unknown]
  - Back pain [Unknown]
  - Pruritus [Unknown]
  - Neck pain [Unknown]
  - Weight decreased [Unknown]
  - Frequent bowel movements [Unknown]

NARRATIVE: CASE EVENT DATE: 20211028
